FAERS Safety Report 8467449-1 (Version None)
Quarter: 2012Q2

REPORT INFORMATION
  Report Type: 
  Country: None (occurrence: None)
  Receive Date: 20120626
  Receipt Date: 20120501
  Transmission Date: 20120825
  Serious: No
  Sender: FDA-Public Use
  Company Number: US-ASTRAZENECA-2012SE21544

PATIENT
  Age: 68 Year
  Sex: Male

DRUGS (5)
  1. HYDROCODONE BITARTRATE + ACETAMINOPHEN [Concomitant]
     Dosage: 5-500 MG PRN
     Route: 048
  2. CAPRELSA [Suspect]
     Indication: THYROID CANCER
     Route: 048
     Dates: start: 20120206
  3. LORTAB [Concomitant]
     Indication: PAIN
  4. PERCOCET [Concomitant]
     Dosage: 5-325 MG PRN
     Route: 048
  5. FENTANYL-100 [Concomitant]
     Indication: PAIN
     Route: 061

REACTIONS (6)
  - DYSPNOEA [None]
  - ABDOMINAL PAIN UPPER [None]
  - PANIC ATTACK [None]
  - PHOTOSENSITIVITY REACTION [None]
  - SKIN EXFOLIATION [None]
  - RASH [None]
